FAERS Safety Report 16461659 (Version 1)
Quarter: 2019Q2

REPORT INFORMATION
  Report Type: Spontaneous
  Country: TR (occurrence: TR)
  Receive Date: 20190621
  Receipt Date: 20190621
  Transmission Date: 20190711
  Serious: Yes (Other)
  Sender: FDA-Public Use
  Company Number: TR-SUN PHARMACEUTICAL INDUSTRIES LTD-2019RR-211095

PATIENT
  Age: 39 Year
  Sex: Female

DRUGS (8)
  1. SULPHAMETHOXAZOLE + TRIMETHOPRIM [Suspect]
     Active Substance: SULFAMETHOXAZOLE\TRIMETHOPRIM
     Indication: BRUCELLOSIS
     Dosage: 800/160 MG/DAY
     Route: 065
  2. CEFTRIAXONE. [Concomitant]
     Active Substance: CEFTRIAXONE
     Indication: BRUCELLOSIS
     Dosage: 2 GRAM, DAILY
     Route: 065
  3. AZITHROMYCIN ANHYDROUS. [Suspect]
     Active Substance: AZITHROMYCIN ANHYDROUS
     Indication: BRUCELLOSIS
     Dosage: 500 MILLIGRAM, DAILY
     Route: 065
  4. OFLOXACIN. [Suspect]
     Active Substance: OFLOXACIN
     Indication: BRUCELLOSIS
     Dosage: 400 MILLIGRAM, DAILY
     Route: 065
  5. GENTAMICIN. [Suspect]
     Active Substance: GENTAMICIN
     Indication: BRUCELLOSIS
     Dosage: 4 MICROGRAM/KILOGRAM, DAILY, ON DAYS 8-12
     Route: 065
  6. RIFABUTIN. [Concomitant]
     Active Substance: RIFABUTIN
     Indication: BRUCELLOSIS
     Dosage: 600 MILLIGRAM, DAILY
     Route: 065
  7. DOXYCYCLINE. [Suspect]
     Active Substance: DOXYCYCLINE
     Indication: BRUCELLOSIS
     Dosage: 200 MILLIGRAM, DAILY, ON DAYS 1-7
     Route: 065
  8. RIFAMPICIN [Suspect]
     Active Substance: RIFAMPIN
     Indication: BRUCELLOSIS
     Dosage: 600 MILLIGRAM, DAILY
     Route: 065

REACTIONS (5)
  - Dyspnoea [Recovered/Resolved]
  - Nausea [Recovered/Resolved]
  - Vomiting [Recovered/Resolved]
  - Drug intolerance [Unknown]
  - Skin reaction [Recovered/Resolved]
